FAERS Safety Report 15655041 (Version 3)
Quarter: 2018Q4

REPORT INFORMATION
  Report Type: Report from Study
  Country: US (occurrence: US)
  Receive Date: 20181126
  Receipt Date: 20181228
  Transmission Date: 20190205
  Serious: Yes (Other)
  Sender: FDA-Public Use
  Company Number: US-TEVA-2018-US-978758

PATIENT
  Sex: Female

DRUGS (3)
  1. CLARAVIS [Suspect]
     Active Substance: ISOTRETINOIN
     Dosage: TOOK 40 PILLS FROM 17-OCT2018 TO 16-NOV-2018, QD ALT. WITH BID
     Route: 065
     Dates: start: 20180703, end: 20181116
  2. CLARAVIS [Suspect]
     Active Substance: ISOTRETINOIN
     Dosage: QD ALT. WITH BID
     Dates: start: 20180703, end: 20181115
  3. CLARAVIS [Suspect]
     Active Substance: ISOTRETINOIN

REACTIONS (2)
  - Maternal exposure during pregnancy [Unknown]
  - Unintended pregnancy [Unknown]
